FAERS Safety Report 9134796 (Version 2)
Quarter: 2013Q1

REPORT INFORMATION
  Report Type: Spontaneous
  Country: DE (occurrence: DE)
  Receive Date: 20130304
  Receipt Date: 20130326
  Transmission Date: 20140127
  Serious: Yes (Other)
  Sender: FDA-Public Use
  Company Number: PHHY2013DE012860

PATIENT
  Sex: Female
  Weight: 69 kg

DRUGS (4)
  1. GILENYA [Suspect]
     Indication: RELAPSING-REMITTING MULTIPLE SCLEROSIS
     Dosage: 0.5 MG, QD
     Route: 048
     Dates: start: 20130130, end: 20130204
  2. HORMONES [Concomitant]
  3. UTROGEST [Concomitant]
     Indication: BLOOD OESTROGEN INCREASED
     Dosage: 200 MG, QD
     Route: 048
     Dates: start: 2010
  4. MAGNESIUM [Concomitant]
     Indication: CONSTIPATION
     Dosage: 600 MG, UNK
     Route: 048
     Dates: start: 201208

REACTIONS (15)
  - Renal failure [Unknown]
  - Face oedema [Recovered/Resolved]
  - Generalised oedema [Recovering/Resolving]
  - Blood calcium decreased [Unknown]
  - Urine output decreased [Unknown]
  - Glomerular filtration rate decreased [Unknown]
  - Weight increased [Not Recovered/Not Resolved]
  - Asthma [Recovering/Resolving]
  - Dyspnoea [Recovering/Resolving]
  - Cough [Recovering/Resolving]
  - Bronchospasm [Recovering/Resolving]
  - Heart rate decreased [Recovering/Resolving]
  - Liver disorder [Recovering/Resolving]
  - Headache [Recovering/Resolving]
  - Asthenia [Unknown]
